FAERS Safety Report 22808750 (Version 4)
Quarter: 2023Q4

REPORT INFORMATION
  Report Type: Spontaneous
  Country: GB (occurrence: GB)
  Receive Date: 20230810
  Receipt Date: 20231006
  Transmission Date: 20240110
  Serious: Yes (Other)
  Sender: FDA-Public Use
  Company Number: None

PATIENT
  Age: 78 Year
  Sex: Female

DRUGS (4)
  1. LOSARTAN [Suspect]
     Active Substance: LOSARTAN
     Indication: Product used for unknown indication
     Dosage: 50 MG (INCREASED TO 50MG AT WHICH POINT REACTIONS OCCURRED)
     Route: 065
  2. AMOXIL [Concomitant]
     Active Substance: AMOXICILLIN
     Indication: Product used for unknown indication
     Dosage: UNKNOWN
     Route: 065
  3. INDAPAMIDE [Concomitant]
     Active Substance: INDAPAMIDE
     Indication: Product used for unknown indication
     Dosage: 50 MG (INCREASED TO 50MG AT WHICH POINT REACTIONS OCCURRED)
     Route: 065
  4. PREDNISONE [Concomitant]
     Active Substance: PREDNISONE
     Indication: Product used for unknown indication
     Dosage: UNKNOWN
     Route: 065

REACTIONS (14)
  - Lower respiratory tract infection [Unknown]
  - Dyspnoea [Unknown]
  - Fatigue [Unknown]
  - Dizziness [Unknown]
  - Feeling hot [Unknown]
  - Hyperhidrosis [Unknown]
  - Oral herpes [Unknown]
  - Tremor [Unknown]
  - Palpitations [Unknown]
  - Abdominal discomfort [Unknown]
  - Decreased appetite [Unknown]
  - Incorrect dose administered [Unknown]
  - Intentional product use issue [Unknown]
  - Product dose confusion [Unknown]

NARRATIVE: CASE EVENT DATE: 20230522
